FAERS Safety Report 25685746 (Version 4)
Quarter: 2025Q4

REPORT INFORMATION
  Report Type: Report from Study
  Country: US (occurrence: US)
  Receive Date: 20250815
  Receipt Date: 20251214
  Transmission Date: 20260117
  Serious: No
  Sender: PFIZER
  Company Number: US-PFIZER INC-PV202500098423

PATIENT
  Age: 84 Year
  Sex: Female
  Weight: 100.68 kg

DRUGS (1)
  1. IBRANCE [Suspect]
     Active Substance: PALBOCICLIB
     Indication: Breast cancer female
     Dosage: 125 MG

REACTIONS (8)
  - Nausea [Unknown]
  - Weight decreased [Unknown]
  - White blood cell count decreased [Unknown]
  - Oral pain [Unknown]
  - Fatigue [Unknown]
  - Blood pressure diastolic decreased [Unknown]
  - Productive cough [Recovering/Resolving]
  - Feeling cold [Unknown]

NARRATIVE: CASE EVENT DATE: 20250101
